FAERS Safety Report 7600789-4 (Version None)
Quarter: 2011Q3

REPORT INFORMATION
  Report Type: 
  Country: None (occurrence: None)
  Receive Date: 20110711
  Receipt Date: 20110621
  Transmission Date: 20111222
  Serious: No
  Sender: FDA-Public Use
  Company Number: US-B.I. PHARMACEUTICALS,INC./RIDGEFIELD-2011-BP-03190BP

PATIENT
  Sex: Male

DRUGS (18)
  1. PRADAXA [Suspect]
     Indication: ATRIAL FLUTTER
     Dosage: 300 MG
     Route: 048
     Dates: start: 20110121, end: 20110202
  2. COUMADIN [Concomitant]
     Dosage: 5 MG
     Dates: start: 20110418
  3. ACTOS [Concomitant]
  4. ASPIRIN [Concomitant]
     Dosage: 81 MG
  5. NIACIN [Concomitant]
  6. RANITIDINE [Concomitant]
  7. ALTACE [Concomitant]
     Dosage: 10 MG
     Dates: start: 20090831
  8. SIMVASTATIN [Concomitant]
     Dosage: 10 MG
     Dates: start: 20090831
  9. LECITHIN [Concomitant]
  10. VITAMIN TAB [Concomitant]
  11. COENZYME Q10 [Concomitant]
     Dates: start: 20110418
  12. OSTEO BI FLEX [Concomitant]
  13. PREVACID [Concomitant]
  14. METFORMIN HCL [Concomitant]
     Dates: start: 20070831
  15. JANUVIA [Concomitant]
  16. TRAVATAN DROPS [Concomitant]
  17. FISH OIL [Concomitant]
  18. CLARITIN [Concomitant]
     Dosage: 10 MG
     Dates: start: 20110124

REACTIONS (3)
  - DIARRHOEA [None]
  - INSOMNIA [None]
  - GASTROOESOPHAGEAL REFLUX DISEASE [None]
